FAERS Safety Report 19870999 (Version 1)
Quarter: 2021Q3

REPORT INFORMATION
  Report Type: Spontaneous
  Country: US (occurrence: US)
  Receive Date: 20210922
  Receipt Date: 20210922
  Transmission Date: 20211014
  Serious: No
  Sender: FDA-Public Use
  Company Number: None

PATIENT
  Age: 68 Year
  Sex: Male

DRUGS (3)
  1. SUTENT [Suspect]
     Active Substance: SUNITINIB MALATE
     Indication: RENAL CELL CARCINOMA
  2. SUTENT [Concomitant]
     Active Substance: SUNITINIB MALATE
     Dates: start: 20201221
  3. SUTENT [Suspect]
     Active Substance: SUNITINIB MALATE
     Indication: GASTROINTESTINAL STROMAL TUMOUR

REACTIONS (5)
  - Nausea [None]
  - Fatigue [None]
  - Diarrhoea [None]
  - Vomiting [None]
  - Decreased appetite [None]

NARRATIVE: CASE EVENT DATE: 20210922
